FAERS Safety Report 9322580 (Version 3)
Quarter: 2013Q2

REPORT INFORMATION
  Report Type: Spontaneous
  Country: US (occurrence: US)
  Receive Date: 20130531
  Receipt Date: 20130628
  Transmission Date: 20140414
  Serious: No
  Sender: FDA-Public Use
  Company Number: US-009507513-1305USA011570

PATIENT
  Age: 71 Year
  Sex: Female
  Weight: 73.92 kg

DRUGS (7)
  1. ZETIA [Suspect]
     Indication: HYPERLIPIDAEMIA
     Dosage: 1 DF, QD
     Route: 048
     Dates: start: 20130501, end: 20130513
  2. NO FLUSH NIACIN [Suspect]
     Indication: LOW DENSITY LIPOPROTEIN INCREASED
     Dosage: UNK
     Dates: start: 20130501, end: 20130513
  3. LIPITOR [Concomitant]
  4. SYNTHROID [Concomitant]
  5. ATENOLOL [Concomitant]
  6. OXYBUTIN [Concomitant]
  7. QUINAPRIL [Concomitant]

REACTIONS (4)
  - Local swelling [Recovered/Resolved]
  - Pain in extremity [Recovered/Resolved]
  - Swelling face [Recovered/Resolved]
  - Eye swelling [Not Recovered/Not Resolved]
